FAERS Safety Report 9631759 (Version 2)
Quarter: 2013Q4

REPORT INFORMATION
  Report Type: Spontaneous
  Country: US (occurrence: US)
  Receive Date: 20131018
  Receipt Date: 20131018
  Transmission Date: 20140711
  Serious: Yes (Hospitalization, Other)
  Sender: FDA-Public Use
  Company Number: US-ABBVIE-11P-163-0869409-00

PATIENT
  Age: 22 Year
  Sex: Male
  Weight: 77.66 kg

DRUGS (2)
  1. HUMIRA 40 MG/0.8 ML PEN [Suspect]
     Indication: CROHN^S DISEASE
     Dosage: FIRST DOSE 160 MG
     Dates: start: 20110817, end: 20110817
  2. HUMIRA 40 MG/0.8 ML PEN [Suspect]
     Dosage: SECOND DOSE OF 80 MG
     Dates: start: 20110831, end: 20110831

REACTIONS (6)
  - Acute febrile neutrophilic dermatosis [Recovering/Resolving]
  - Oropharyngeal pain [Recovered/Resolved]
  - Rash erythematous [Recovering/Resolving]
  - Pyrexia [Recovered/Resolved]
  - Erythema multiforme [Not Recovered/Not Resolved]
  - Pyrexia [Recovering/Resolving]
